FAERS Safety Report 21205785 (Version 1)
Quarter: 2022Q3

REPORT INFORMATION
  Report Type: Spontaneous
  Country: US (occurrence: US)
  Receive Date: 20220812
  Receipt Date: 20220812
  Transmission Date: 20221027
  Serious: Yes (Other)
  Sender: FDA-Public Use
  Company Number: US-TEVA-2022-US-2063151

PATIENT
  Age: 29 Year
  Sex: Female
  Weight: 78.93 kg

DRUGS (3)
  1. AJOVY [Suspect]
     Active Substance: FREMANEZUMAB-VFRM
     Indication: Migraine
     Dosage: TAKE 3 INJECTIONS QUARTERLY
     Route: 065
     Dates: start: 20220729
  2. AJOVY [Suspect]
     Active Substance: FREMANEZUMAB-VFRM
  3. SUMATRIPTAN [Concomitant]
     Active Substance: SUMATRIPTAN
     Indication: Product used for unknown indication
     Dosage: AS NEEDED

REACTIONS (4)
  - Thrombosis [Unknown]
  - Injection site reaction [Unknown]
  - Tenderness [Recovered/Resolved]
  - Pain in extremity [Recovering/Resolving]

NARRATIVE: CASE EVENT DATE: 20220101
